FAERS Safety Report 9454960 (Version 1)
Quarter: 2013Q3

REPORT INFORMATION
  Report Type: Spontaneous
  Country: US (occurrence: US)
  Receive Date: 20130813
  Receipt Date: 20130813
  Transmission Date: 20140515
  Serious: No
  Sender: FDA-Public Use
  Company Number: US-BIOGENIDEC-2013BI074061

PATIENT
  Sex: Female

DRUGS (3)
  1. TYSABRI [Suspect]
     Indication: MULTIPLE SCLEROSIS
     Route: 042
     Dates: start: 20120925, end: 20120925
  2. TYSABRI [Suspect]
     Indication: MULTIPLE SCLEROSIS
     Route: 042
     Dates: start: 20130606
  3. AVONEX [Concomitant]
     Indication: MULTIPLE SCLEROSIS
     Route: 030
     Dates: start: 20080612

REACTIONS (8)
  - Anxiety [Unknown]
  - General symptom [Unknown]
  - Optic neuritis [Unknown]
  - Stress [Unknown]
  - Depression [Unknown]
  - Multiple sclerosis relapse [Unknown]
  - Chills [Recovered/Resolved]
  - Dizziness [Recovered/Resolved]
